FAERS Safety Report 23943654 (Version 1)
Quarter: 2024Q2

REPORT INFORMATION
  Report Type: Spontaneous
  Country: US (occurrence: US)
  Receive Date: 20240606
  Receipt Date: 20240606
  Transmission Date: 20240716
  Serious: Yes (Other)
  Sender: FDA-Public Use
  Company Number: US-NOVOPROD-1231356

PATIENT
  Age: 73 Year
  Sex: Female

DRUGS (1)
  1. FIASP [Suspect]
     Active Substance: INSULIN ASPART
     Indication: Type 2 diabetes mellitus
     Dosage: UNK
     Route: 058
     Dates: start: 202301

REACTIONS (2)
  - Knee operation [Not Recovered/Not Resolved]
  - Glaucoma surgery [Unknown]

NARRATIVE: CASE EVENT DATE: 20230501
